FAERS Safety Report 7159702-9 (Version None)
Quarter: 2010Q4

REPORT INFORMATION
  Report Type: 
  Country: None (occurrence: None)
  Receive Date: 20101214
  Receipt Date: 20101015
  Transmission Date: 20110411
  Serious: No
  Sender: FDA-Public Use
  Company Number: US-ASTRAZENECA-2010SE49151

PATIENT
  Age: 60 Year
  Sex: Female
  Weight: 55.3 kg

DRUGS (11)
  1. CRESTOR [Suspect]
     Indication: BLOOD CHOLESTEROL INCREASED
     Route: 048
     Dates: start: 20100201, end: 20100207
  2. CRESTOR [Suspect]
     Route: 048
     Dates: start: 20101014
  3. SYNTHROID [Concomitant]
     Indication: THYROID DISORDER
  4. CYTOMEL [Concomitant]
     Indication: THYROID DISORDER
  5. TAPAZOLE [Concomitant]
     Indication: THYROID DISORDER
  6. NEXIUM [Concomitant]
  7. EFFEXOR [Concomitant]
  8. AMPHETAMINE MIX [Concomitant]
  9. LUNESTA [Concomitant]
  10. ESTRADIOL [Concomitant]
  11. PROMETRIUM [Concomitant]

REACTIONS (6)
  - ARTERIAL SPASM [None]
  - CATHETERISATION CARDIAC [None]
  - COUGH [None]
  - DYSPNOEA [None]
  - HEART RATE INCREASED [None]
  - MUSCULAR WEAKNESS [None]
